FAERS Safety Report 8198441-2 (Version None)
Quarter: 2012Q1

REPORT INFORMATION
  Report Type: 
  Country: None (occurrence: None)
  Receive Date: 20120309
  Receipt Date: 20120302
  Transmission Date: 20120608
  Serious: Yes (Other)
  Sender: FDA-Public Use
  Company Number: PHHY2012US018501

PATIENT
  Age: 52 Year
  Sex: Female

DRUGS (4)
  1. AZATHIOPRINE [Concomitant]
  2. DICLOFENAC SODIUM [Concomitant]
  3. PREDNISONE [Concomitant]
  4. ALENDRONIC ACID [Suspect]

REACTIONS (7)
  - OSTEOARTHRITIS [None]
  - PERIOSTITIS [None]
  - BONE PAIN [None]
  - FEMUR FRACTURE [None]
  - PAIN IN EXTREMITY [None]
  - GAIT DISTURBANCE [None]
  - BACK PAIN [None]
